FAERS Safety Report 9949315 (Version 1)
Quarter: 2014Q1

REPORT INFORMATION
  Report Type: Spontaneous
  Country: US (occurrence: US)
  Receive Date: 20140304
  Receipt Date: 20140304
  Transmission Date: 20141002
  Serious: No
  Sender: FDA-Public Use
  Company Number: US-PFIZER INC-2014058377

PATIENT
  Age: 64 Year
  Sex: Female

DRUGS (2)
  1. LYRICA [Suspect]
     Indication: PAIN IN EXTREMITY
     Dosage: 75 MG, 2X/DAY (1-1 EVE)
     Route: 048
     Dates: start: 2007, end: 2008
  2. LYRICA [Suspect]
     Indication: SWELLING

REACTIONS (3)
  - Off label use [Unknown]
  - Dizziness [Unknown]
  - Gastritis [Unknown]
